FAERS Safety Report 7428506-1 (Version None)
Quarter: 2011Q2

REPORT INFORMATION
  Report Type: 
  Country: None (occurrence: None)
  Receive Date: 20110421
  Receipt Date: 20110411
  Transmission Date: 20111010
  Serious: Yes (Other)
  Sender: FDA-Public Use
  Company Number: PHHY2011DE18179

PATIENT
  Sex: Male

DRUGS (6)
  1. METOPROLOL [Concomitant]
     Dosage: UNK
     Dates: start: 20060101
  2. RASILEZ [Suspect]
     Indication: HYPERTENSION
     Dosage: 300 MG, UNK
     Dates: start: 20110101, end: 20110302
  3. SIMVASTATIN [Concomitant]
     Dosage: UNK
     Dates: start: 20060101
  4. LERCANIDIPINE [Concomitant]
     Dosage: UNK
     Dates: start: 20060101
  5. RAMIPRIL [Concomitant]
     Dosage: UNK
     Dates: start: 20060101
  6. HYDROCHLOROTHIAZIDE [Concomitant]
     Dosage: UNK
     Dates: start: 20060101

REACTIONS (3)
  - IDIOSYNCRATIC DRUG REACTION [None]
  - HEPATIC NECROSIS [None]
  - BILE DUCT STONE [None]
